FAERS Safety Report 6766291-7 (Version None)
Quarter: 2010Q2

REPORT INFORMATION
  Report Type: 
  Country: None (occurrence: None)
  Receive Date: 20100611
  Receipt Date: 20100601
  Transmission Date: 20101027
  Serious: Yes (Other)
  Sender: FDA-Public Use
  Company Number: US-SANOFI-AVENTIS-2010SA031846

PATIENT
  Sex: Male

DRUGS (3)
  1. MULTAQ [Suspect]
     Route: 065
  2. DIGOXIN [Suspect]
     Route: 065
  3. TYLENOL [Concomitant]

REACTIONS (4)
  - ACCIDENTAL OVERDOSE [None]
  - CARDIOACTIVE DRUG LEVEL INCREASED [None]
  - DRUG ADMINISTRATION ERROR [None]
  - DYSPNOEA [None]
